FAERS Safety Report 18700442 (Version 1)
Quarter: 2021Q1

REPORT INFORMATION
  Report Type: Spontaneous
  Country: US (occurrence: US)
  Receive Date: 20210104
  Receipt Date: 20210104
  Transmission Date: 20210419
  Serious: No
  Sender: FDA-Public Use
  Company Number: None

PATIENT
  Age: 53 Year
  Sex: Male

DRUGS (2)
  1. ENBREL [Suspect]
     Active Substance: ETANERCEPT
     Indication: PSORIATIC ARTHROPATHY
     Dosage: TWO TIMES A WEEK 72?96 HOURS APART AS DIRECTED
     Route: 058
     Dates: start: 202003
  2. ENBREL [Suspect]
     Active Substance: ETANERCEPT
     Indication: PSORIASIS
     Dosage: TWO TIMES A WEEK 72?96 HOURS APART AS DIRECTED
     Route: 058
     Dates: start: 202003

REACTIONS (2)
  - COVID-19 [None]
  - Therapy interrupted [None]
